FAERS Safety Report 7991586-9 (Version None)
Quarter: 2011Q4

REPORT INFORMATION
  Report Type: 
  Country: None (occurrence: None)
  Receive Date: 20111219
  Receipt Date: 20110111
  Transmission Date: 20120403
  Serious: No
  Sender: FDA-Public Use
  Company Number: US-ABBOTT-11P-163-0697189-00

PATIENT

DRUGS (1)
  1. ADVICOR [Suspect]
     Indication: HYPERLIPIDAEMIA
     Dosage: 500/20 MG
     Dates: start: 20101124, end: 20110101

REACTIONS (1)
  - PAIN [None]
